FAERS Safety Report 8483553-6 (Version None)
Quarter: 2012Q3

REPORT INFORMATION
  Report Type: 
  Country: None (occurrence: None)
  Receive Date: 20120702
  Receipt Date: 20120626
  Transmission Date: 20120928
  Serious: Yes (Hospitalization, Other)
  Sender: FDA-Public Use
  Company Number: US-MERCK-1107USA01264

PATIENT
  Age: 54 Year
  Sex: Female
  Weight: 72 kg

DRUGS (6)
  1. FOSAMAX [Suspect]
     Indication: PROPHYLAXIS
     Route: 048
     Dates: start: 20040801, end: 20080101
  2. FOSAMAX [Suspect]
     Route: 048
     Dates: start: 20000201
  3. FOSAMAX [Suspect]
     Indication: OSTEOPOROSIS PROPHYLAXIS
     Route: 048
     Dates: start: 20040801, end: 20080101
  4. FOSAMAX [Suspect]
     Route: 048
     Dates: start: 20000201
  5. PREDNISONE [Concomitant]
     Indication: ADRENAL INSUFFICIENCY
     Route: 048
  6. ALENDRONATE SODIUM [Suspect]
     Indication: OSTEOPOROSIS PROPHYLAXIS
     Route: 048
     Dates: start: 20080401, end: 20100701

REACTIONS (29)
  - FALL [None]
  - ENTEROCOCCAL INFECTION [None]
  - TENDON CALCIFICATION [None]
  - LUMBAR RADICULOPATHY [None]
  - GOITRE [None]
  - BURSITIS [None]
  - TOOTH DISORDER [None]
  - FEMUR FRACTURE [None]
  - ANXIETY [None]
  - URINARY TRACT INFECTION ENTEROCOCCAL [None]
  - SPINAL COLUMN STENOSIS [None]
  - SCIATICA [None]
  - HAEMORRHAGIC DISORDER [None]
  - DEPRESSION [None]
  - FRACTURE DELAYED UNION [None]
  - TREATMENT NONCOMPLIANCE [None]
  - SNORING [None]
  - HEPATIC STEATOSIS [None]
  - BILIARY DILATATION [None]
  - CHOLELITHIASIS [None]
  - THROMBOCYTOPENIA [None]
  - ATROPHIC VULVOVAGINITIS [None]
  - IMPAIRED HEALING [None]
  - ANAEMIA POSTOPERATIVE [None]
  - MYOCARDIAL INFARCTION [None]
  - DENTAL CARIES [None]
  - VITAMIN D DEFICIENCY [None]
  - LIMB ASYMMETRY [None]
  - SCAPULA FRACTURE [None]
